FAERS Safety Report 9482367 (Version 1)
Quarter: 2013Q3

REPORT INFORMATION
  Report Type: Spontaneous
  Country: GB (occurrence: GB)
  Receive Date: 20130828
  Receipt Date: 20130828
  Transmission Date: 20140515
  Serious: Yes (Other)
  Sender: FDA-Public Use
  Company Number: PHHY2013GB090958

PATIENT
  Age: 73 Year
  Sex: Female
  Weight: 86 kg

DRUGS (2)
  1. ALENDRONIC ACID [Suspect]
     Dosage: 70 MG, QW
     Route: 048
     Dates: start: 20120619
  2. RISEDRONATE SODIUM [Suspect]
     Dosage: 35 MG, UNK
     Route: 048
     Dates: start: 201207

REACTIONS (3)
  - Fatigue [Not Recovered/Not Resolved]
  - Myalgia [Not Recovered/Not Resolved]
  - Asthenia [Not Recovered/Not Resolved]
